FAERS Safety Report 11266600 (Version 1)
Quarter: 2015Q3

REPORT INFORMATION
  Report Type: Spontaneous
  Country: US (occurrence: US)
  Receive Date: 20150713
  Receipt Date: 20150713
  Transmission Date: 20151125
  Serious: Yes (Other)
  Sender: FDA-Public Use
  Company Number: US-MPIJNJ-2013-03124

PATIENT
  Sex: Female

DRUGS (1)
  1. VELCADE [Suspect]
     Active Substance: BORTEZOMIB
     Indication: MYELOPROLIFERATIVE DISORDER
     Dosage: 2.4 MG, UNK
     Route: 058

REACTIONS (3)
  - Neuropathy peripheral [Unknown]
  - Loss of consciousness [Unknown]
  - Off label use [Unknown]
